FAERS Safety Report 11167651 (Version 2)
Quarter: 2015Q3

REPORT INFORMATION
  Report Type: Spontaneous
  Country: FR (occurrence: FR)
  Receive Date: 20150605
  Receipt Date: 20150706
  Transmission Date: 20151125
  Serious: Yes (Other)
  Sender: FDA-Public Use
  Company Number: FR-PFIZER INC-2015183942

PATIENT
  Age: 34 Year
  Sex: Male

DRUGS (4)
  1. ZYVOXID [Suspect]
     Active Substance: LINEZOLID
     Indication: MENINGITIS
     Dosage: 600 MG, EVERY 12 HOURS
     Route: 042
     Dates: start: 20141108, end: 20141108
  2. ZYVOXID [Suspect]
     Active Substance: LINEZOLID
     Dosage: 600 MG, EVERY 8 HOURS
     Route: 042
     Dates: start: 20141109, end: 20141117
  3. ZYVOXID [Suspect]
     Active Substance: LINEZOLID
     Dosage: 600 MG, EVERY 12 HOURS
     Route: 042
     Dates: start: 20141118, end: 20141118
  4. ZYVOXID [Suspect]
     Active Substance: LINEZOLID
     Dosage: 600 MG, DAILY
     Route: 042
     Dates: start: 20141119, end: 20141119

REACTIONS (1)
  - Lewis-Sumner syndrome [Recovering/Resolving]

NARRATIVE: CASE EVENT DATE: 20141128
